FAERS Safety Report 7094135-5 (Version None)
Quarter: 2010Q4

REPORT INFORMATION
  Report Type: 
  Country: None (occurrence: None)
  Receive Date: 20101110
  Receipt Date: 20101101
  Transmission Date: 20110411
  Serious: Yes (Hospitalization)
  Sender: FDA-Public Use
  Company Number: JP-SANOFI-AVENTIS-2010SA066288

PATIENT
  Age: 60 Year
  Sex: Female

DRUGS (6)
  1. OXALIPLATIN [Suspect]
     Indication: COLON CANCER METASTATIC
     Route: 041
     Dates: start: 20100301, end: 20100301
  2. OXALIPLATIN [Suspect]
     Route: 041
  3. AVASTIN [Suspect]
     Indication: COLON CANCER METASTATIC
     Route: 041
     Dates: start: 20100405, end: 20100405
  4. AVASTIN [Suspect]
     Route: 041
  5. CALCIUM LEVOFOLINATE [Concomitant]
     Dates: start: 20100301, end: 20100301
  6. IRINOTECAN HCL [Concomitant]

REACTIONS (3)
  - ALTERED STATE OF CONSCIOUSNESS [None]
  - HEPATIC ENCEPHALOPATHY [None]
  - HYPERAMMONAEMIA [None]
